FAERS Safety Report 5185758-9 (Version None)
Quarter: 2006Q4

REPORT INFORMATION
  Report Type: 
  Country: None (occurrence: None)
  Receive Date: 20061220
  Receipt Date: 20061213
  Transmission Date: 20070319
  Serious: Yes (Hospitalization)
  Sender: FDA-Public Use
  Company Number: FR-BRISTOL-MYERS SQUIBB COMPANY-13611868

PATIENT
  Sex: Male

DRUGS (2)
  1. REYATAZ [Suspect]
     Route: 048
  2. TELZIR [Suspect]

REACTIONS (1)
  - PARONYCHIA [None]
